FAERS Safety Report 18067312 (Version 1)
Quarter: 2020Q3

REPORT INFORMATION
  Report Type: Report from Study
  Country: CA (occurrence: CA)
  Receive Date: 20200724
  Receipt Date: 20200724
  Transmission Date: 20201103
  Serious: Yes (Other)
  Sender: FDA-Public Use
  Company Number: CA-JNJFOC-20200405594

PATIENT
  Age: 23 Year
  Sex: Female
  Weight: 114 kg

DRUGS (2)
  1. STELARA [Suspect]
     Active Substance: USTEKINUMAB
     Route: 058
     Dates: start: 20190515
  2. STELARA [Suspect]
     Active Substance: USTEKINUMAB
     Indication: CROHN^S DISEASE
     Route: 058
     Dates: start: 20190515

REACTIONS (8)
  - Pruritus [Unknown]
  - Feeling hot [Unknown]
  - Influenza like illness [Unknown]
  - Seasonal allergy [Unknown]
  - Crohn^s disease [Not Recovered/Not Resolved]
  - Headache [Unknown]
  - Dizziness [Unknown]
  - Skin plaque [Unknown]

NARRATIVE: CASE EVENT DATE: 201912
